FAERS Safety Report 8505003-3 (Version None)
Quarter: 2012Q3

REPORT INFORMATION
  Report Type: 
  Country: None (occurrence: None)
  Receive Date: 20120712
  Receipt Date: 20120709
  Transmission Date: 20120928
  Serious: Yes (Hospitalization, Other)
  Sender: FDA-Public Use
  Company Number: GB-US-EMD SERONO, INC.-7142105

PATIENT
  Sex: Male
  Weight: 98.2 kg

DRUGS (4)
  1. TESTOSTERONE [Concomitant]
     Indication: HYPOPITUITARISM
     Route: 030
     Dates: start: 20050701
  2. SAIZEN [Suspect]
     Indication: GROWTH HORMONE DEFICIENCY
     Route: 058
     Dates: start: 20100921, end: 20120702
  3. HYDROCORTISONE [Concomitant]
     Indication: HYPOPITUITARISM
     Route: 048
     Dates: start: 20050701
  4. LEVOTHYROXINE SODIUM [Concomitant]
     Indication: HYPOPITUITARISM
     Route: 048
     Dates: start: 20050701

REACTIONS (1)
  - GASTROINTESTINAL CARCINOMA [None]
